FAERS Safety Report 8893275 (Version 1)
Quarter: 2012Q4

REPORT INFORMATION
  Report Type: Spontaneous
  Country: US (occurrence: None)
  Receive Date: 20121031
  Receipt Date: 20121031
  Transmission Date: 20130627
  Serious: Yes (Other)
  Sender: FDA-Public Use
  Company Number: ADR-2012-01949

PATIENT
  Sex: Female

DRUGS (2)
  1. LIORESAL INTRATHECAL (BACLOFEN INJECTION) [Suspect]
  2. LIORESAL INTRATHECAL (BACLOFEN INJECTION) [Suspect]

REACTIONS (3)
  - Hepatomegaly [None]
  - Hepatic enzyme increased [None]
  - Blood alkaline phosphatase increased [None]
